FAERS Safety Report 20506062 (Version 1)
Quarter: 2022Q1

REPORT INFORMATION
  Report Type: Spontaneous
  Country: US (occurrence: US)
  Receive Date: 20220223
  Receipt Date: 20220223
  Transmission Date: 20220423
  Serious: Yes (Other)
  Sender: FDA-Public Use
  Company Number: US-MYLANLABS-2022M1014322

PATIENT
  Age: 24 Year
  Sex: Female

DRUGS (1)
  1. LEVOTHYROXINE [Suspect]
     Active Substance: LEVOTHYROXINE
     Indication: Hypopituitarism
     Dosage: UNK
     Route: 065

REACTIONS (2)
  - Hyperthyroidism [Unknown]
  - Intentional product misuse [Unknown]
